FAERS Safety Report 5097213-5 (Version None)
Quarter: 2006Q3

REPORT INFORMATION
  Report Type: 
  Country: None (occurrence: None)
  Receive Date: 20060906
  Receipt Date: 20060510
  Transmission Date: 20061208
  Serious: Yes (Hospitalization)
  Sender: FDA-Public Use
  Company Number: DE-AMGEN-UK179217

PATIENT
  Sex: Male

DRUGS (3)
  1. NEUPOGEN [Suspect]
     Indication: PERIPHERAL BLOOD STEM CELL APHERESIS
     Route: 058
     Dates: start: 20060504, end: 20060507
  2. PARACETAMOL [Concomitant]
     Route: 048
     Dates: start: 20060506, end: 20060507
  3. OXYGEN [Concomitant]
     Dates: start: 20060507, end: 20060509

REACTIONS (3)
  - DYSPNOEA [None]
  - HAEMOPTYSIS [None]
  - LUNG INFILTRATION [None]
